FAERS Safety Report 26125590 (Version 1)
Quarter: 2025Q4

REPORT INFORMATION
  Report Type: Spontaneous
  Country: US (occurrence: US)
  Receive Date: 20251205
  Receipt Date: 20251205
  Transmission Date: 20260117
  Serious: Yes (Hospitalization)
  Sender: DR REDDYS
  Company Number: None

PATIENT
  Age: 73 Year
  Sex: Female

DRUGS (3)
  1. TACROLIMUS [Suspect]
     Active Substance: TACROLIMUS
     Indication: Product used for unknown indication
  2. NIRMATRELVIR [Suspect]
     Active Substance: NIRMATRELVIR
     Indication: COVID-19
  3. RITONAVIR [Suspect]
     Active Substance: RITONAVIR
     Indication: COVID-19

REACTIONS (4)
  - Blood creatine increased [Recovered/Resolved]
  - Hypomagnesaemia [Recovering/Resolving]
  - Drug level above therapeutic [Recovered/Resolved]
  - Drug interaction [Recovering/Resolving]
